FAERS Safety Report 12681041 (Version 5)
Quarter: 2016Q4

REPORT INFORMATION
  Report Type: Report from Study
  Country: CZ (occurrence: CZ)
  Receive Date: 20160824
  Receipt Date: 20161206
  Transmission Date: 20170207
  Serious: Yes (Death, Life-Threatening, Hospitalization)
  Sender: FDA-Public Use
  Company Number: CZ-PFIZER INC-2016388138

PATIENT
  Age: 70 Year
  Sex: Male
  Weight: 80 kg

DRUGS (13)
  1. BLINDED PLACEBO [Suspect]
     Active Substance: INVESTIGATIONAL PRODUCT
     Indication: SQUAMOUS CELL CARCINOMA
     Dosage: 125 MG, DAILY
     Route: 048
     Dates: start: 20160722, end: 20160801
  2. CARBOPLATIN. [Suspect]
     Active Substance: CARBOPLATIN
     Indication: NEOPLASM MALIGNANT
     Dosage: 335 MG, SINGLE
     Route: 042
     Dates: start: 20160803, end: 20160803
  3. BLINDED PALBOCICLIB/PLACEBO [Suspect]
     Active Substance: PALBOCICLIB
     Indication: SQUAMOUS CELL CARCINOMA
     Dosage: 125 MG, DAILY
     Route: 048
     Dates: start: 20160722, end: 20160801
  4. AGEN [Concomitant]
     Indication: HYPERTENSION
     Dosage: 5 MG, DAILY
     Route: 048
     Dates: start: 201602
  5. CETUXIMAB [Suspect]
     Active Substance: CETUXIMAB
     Indication: SQUAMOUS CELL CARCINOMA
     Dosage: 800 MG, UNK
     Route: 042
     Dates: start: 20160722, end: 20160801
  6. MILURIT [Concomitant]
     Active Substance: ALLOPURINOL
     Indication: ARTHRITIS
     Dosage: 100 MG, DAILY
     Route: 048
     Dates: start: 20160609
  7. ALGIFEN NEO [Concomitant]
     Indication: PAIN
     Dosage: 60 GTT, 3X/DAY
     Route: 048
     Dates: start: 201509
  8. DITHIADEN [Concomitant]
     Active Substance: BISULEPIN
     Indication: PREMEDICATION
     Dosage: 0.5 MG/ML, SINGLE, 10 X 2 ML X 0.5 MG/ML
     Route: 042
     Dates: start: 20160722, end: 20160722
  9. BLINDED PALBOCICLIB/PLACEBO [Suspect]
     Active Substance: PALBOCICLIB
     Indication: SQUAMOUS CELL CARCINOMA
     Dosage: 125 MG, DAILY
     Route: 048
     Dates: start: 20160722, end: 20160801
  10. DOCETAXEL. [Suspect]
     Active Substance: DOCETAXEL
     Indication: NEOPLASM MALIGNANT
     Dosage: 150 MG, SINGLE
     Route: 042
     Dates: start: 20160803, end: 20160803
  11. BLINDED PLACEBO [Suspect]
     Active Substance: INVESTIGATIONAL PRODUCT
     Indication: SQUAMOUS CELL CARCINOMA
     Dosage: 125 MG, DAILY
     Route: 048
     Dates: start: 20160722, end: 20160801
  12. HYDROCORTISON [Concomitant]
     Active Substance: HYDROCORTISONE
     Indication: PREMEDICATION
     Dosage: 100 MG, SINGLE
     Route: 042
     Dates: start: 20160722, end: 20160722
  13. RANITIDINE. [Concomitant]
     Active Substance: RANITIDINE
     Indication: PREMEDICATION
     Dosage: 50 MG/ML, SINGLE, 50 MG / 2ML
     Route: 042

REACTIONS (4)
  - Immunodeficiency [None]
  - Toxicity to various agents [None]
  - Sepsis [Fatal]
  - Anaphylactic reaction [None]

NARRATIVE: CASE EVENT DATE: 20160810
